FAERS Safety Report 6372142-5 (Version None)
Quarter: 2009Q3

REPORT INFORMATION
  Report Type: 
  Country: None (occurrence: None)
  Receive Date: 20090917
  Receipt Date: 20090909
  Transmission Date: 20100115
  Serious: Yes (Hospitalization)
  Sender: FDA-Public Use
  Company Number: 1000008488

PATIENT
  Age: 86 Year
  Sex: Female
  Weight: 46 kg

DRUGS (10)
  1. MEMANTINE HCL [Suspect]
     Indication: DEMENTIA ALZHEIMER'S TYPE
     Dosage: 20 MG (20 MG, 1 IN 1 D), ORAL
     Route: 048
     Dates: start: 20061111
  2. ALFACALCIDOL [Concomitant]
  3. IRSOGLADINE MALEATE [Concomitant]
  4. ASPIRIN_DIALUMINATE [Concomitant]
  5. TIAPRIDE HYDROCHLORIDE [Concomitant]
  6. AMLODIPINE BESYLATE [Concomitant]
  7. ENALAPRIL MALEATE [Concomitant]
  8. FLAVOXATE HYDROCHLORIDE [Concomitant]
  9. GLICLAZIDE [Concomitant]
  10. MAGNESIUM OXIDE [Concomitant]

REACTIONS (1)
  - PNEUMONIA [None]
